FAERS Safety Report 6897959-X (Version None)
Quarter: 2010Q3

REPORT INFORMATION
  Report Type: 
  Country: None (occurrence: None)
  Receive Date: 20100802
  Receipt Date: 20070815
  Transmission Date: 20110219
  Serious: No
  Sender: FDA-Public Use
  Company Number: US-PFIZER INC-2007059766

PATIENT
  Sex: Male
  Weight: 72.57 kg

DRUGS (8)
  1. LYRICA [Suspect]
     Indication: JOINT INJURY
     Route: 048
     Dates: start: 20070501
  2. LYRICA [Suspect]
     Indication: NERVE BLOCK
  3. LYRICA [Suspect]
     Indication: NEURALGIA
  4. LOVASTATIN [Concomitant]
  5. GLIPIZIDE [Concomitant]
  6. METFORMIN HCL [Concomitant]
  7. LISINOPRIL [Concomitant]
  8. OPHTHALMOLOGICALS [Concomitant]
     Indication: KERATOCONJUNCTIVITIS SICCA

REACTIONS (2)
  - DIZZINESS [None]
  - MUSCLE TWITCHING [None]
